FAERS Safety Report 17173359 (Version 1)
Quarter: 2019Q4

REPORT INFORMATION
  Report Type: Spontaneous
  Country: HR (occurrence: HR)
  Receive Date: 20191219
  Receipt Date: 20191219
  Transmission Date: 20200122
  Serious: Yes (Other)
  Sender: FDA-Public Use
  Company Number: HR-EMD SERONO-E2B_90073325

PATIENT
  Age: 58 Year
  Sex: Female

DRUGS (1)
  1. REBIF [Suspect]
     Active Substance: INTERFERON BETA-1A
     Indication: MULTIPLE SCLEROSIS
     Dosage: PREFILLED SYRINGES
     Route: 058
     Dates: start: 2011, end: 201911

REACTIONS (2)
  - Application site erythema [Recovered/Resolved with Sequelae]
  - Lipodystrophy acquired [Recovered/Resolved with Sequelae]

NARRATIVE: CASE EVENT DATE: 201908
